FAERS Safety Report 21927199 (Version 1)
Quarter: 2023Q1

REPORT INFORMATION
  Report Type: Spontaneous
  Country: US (occurrence: US)
  Receive Date: 20230130
  Receipt Date: 20230130
  Transmission Date: 20230418
  Serious: Yes (Other)
  Sender: FDA-Public Use
  Company Number: US-SANOFI-01458805

PATIENT
  Age: 77 Year
  Sex: Male

DRUGS (2)
  1. AMBIEN [Suspect]
     Active Substance: ZOLPIDEM TARTRATE
     Dosage: UNK
  2. LANTUS SOLOSTAR [Concomitant]
     Active Substance: INSULIN GLARGINE
     Dosage: 30 UNITS EACH A DAY

REACTIONS (6)
  - Cataract [Unknown]
  - Hunger [Unknown]
  - Food craving [Unknown]
  - Irregular sleep phase [Unknown]
  - Illness [Not Recovered/Not Resolved]
  - Euphoric mood [Unknown]
